FAERS Safety Report 7475897-1 (Version None)
Quarter: 2011Q2

REPORT INFORMATION
  Report Type: 
  Country: None (occurrence: None)
  Receive Date: 20110512
  Receipt Date: 20110428
  Transmission Date: 20111010
  Serious: Yes (Hospitalization, Other)
  Sender: FDA-Public Use
  Company Number: JP-JNJFOC-20110412065

PATIENT
  Age: 62 Year
  Sex: Male

DRUGS (1)
  1. INVEGA [Suspect]
     Indication: SCHIZOPHRENIA
     Route: 048

REACTIONS (4)
  - PULMONARY OEDEMA [None]
  - BODY TEMPERATURE FLUCTUATION [None]
  - PLEURAL EFFUSION [None]
  - C-REACTIVE PROTEIN INCREASED [None]
